FAERS Safety Report 14211886 (Version 1)
Quarter: 2017Q4

REPORT INFORMATION
  Report Type: Report from Study
  Country: AT (occurrence: AT)
  Receive Date: 20171121
  Receipt Date: 20171121
  Transmission Date: 20180321
  Serious: Yes (Hospitalization, Other)
  Sender: FDA-Public Use
  Company Number: AT-GILEAD-2017-0305390

PATIENT
  Age: 32 Year
  Sex: Female

DRUGS (1)
  1. ELVITEGRAVIR/EMTRICITABINE/TENOFOVIR DF/COBICISTAT [Suspect]
     Active Substance: COBICISTAT\ELVITEGRAVIR\EMTRICITABINE\TENOFOVIR
     Indication: HIV INFECTION
     Dosage: UNK
     Route: 048
     Dates: start: 201403, end: 201609

REACTIONS (5)
  - Dysphagia [Unknown]
  - Ill-defined disorder [Unknown]
  - Drug ineffective [Unknown]
  - Viral load increased [Recovering/Resolving]
  - Treatment noncompliance [Recovered/Resolved]
